FAERS Safety Report 10024596 (Version 1)
Quarter: 2014Q1

REPORT INFORMATION
  Report Type: Report from Study
  Country: MX (occurrence: MX)
  Receive Date: 20140320
  Receipt Date: 20140320
  Transmission Date: 20141002
  Serious: Yes (Other)
  Sender: FDA-Public Use
  Company Number: MX-ROCHE-1367207

PATIENT
  Age: 63 Year
  Sex: Female
  Weight: 80 kg

DRUGS (2)
  1. XELODA [Suspect]
     Indication: GASTRIC CANCER
     Dosage: FOR 14 DAYS AND A 7-DAY REST PERIOD.?PROGRAMMED CYCLES: 6.
     Route: 065
  2. AVASTIN [Suspect]
     Indication: GASTRIC CANCER
     Dosage: PROGRAMMED CYCLES: 6.
     Route: 065

REACTIONS (3)
  - Febrile neutropenia [Unknown]
  - Anaemia [Unknown]
  - Off label use [Unknown]
